FAERS Safety Report 9528153 (Version 2)
Quarter: 2014Q1

REPORT INFORMATION
  Report Type: Report from Study
  Country: FR (occurrence: FR)
  Receive Date: 20130917
  Receipt Date: 20140206
  Transmission Date: 20141002
  Serious: Yes (Hospitalization, Disabling, Other)
  Sender: FDA-Public Use
  Company Number: PHHO2013FR011962

PATIENT
  Sex: 0

DRUGS (12)
  1. AFINITOR [Suspect]
     Indication: TRANSITIONAL CELL CARCINOMA
     Dosage: 10 MG, DAILY (2, DF, QD)
     Route: 048
     Dates: start: 20130502, end: 20130706
  2. INEXIUM//ESOMEPRAZOLE MAGNESIUM [Concomitant]
     Indication: GASTROOESOPHAGEAL REFLUX DISEASE
     Dosage: 40 MG, (AT EVENING)
  3. OXYCONTIN LP [Concomitant]
     Dosage: BID (MORNING AND EVENING)
  4. PROZAC [Concomitant]
     Dosage: QD
  5. LAROXYL [Concomitant]
     Dosage: 25, AT BED TIME
  6. DAFLON                             /01026201/ [Concomitant]
     Dosage: TID
  7. SPIRULINA [Concomitant]
     Dosage: TID
  8. SPECIAFOLDINE [Concomitant]
     Dosage: QD
  9. DEBRIDAT ^IBRAHIM^ [Concomitant]
     Dosage: TID
  10. SPASFON [Concomitant]
     Dosage: TID
  11. LOVENOX [Concomitant]
     Dosage: QD (IN EVENING)
     Route: 058
  12. DOLIPRANE [Concomitant]
     Dosage: ON NEED

REACTIONS (5)
  - Lymphoedema [Unknown]
  - Pain in extremity [Not Recovered/Not Resolved]
  - Staphylococcal infection [Not Recovered/Not Resolved]
  - Pyrexia [Not Recovered/Not Resolved]
  - General physical health deterioration [Recovered/Resolved]
